FAERS Safety Report 23695943 (Version 1)
Quarter: 2024Q2

REPORT INFORMATION
  Report Type: Spontaneous
  Country: US (occurrence: US)
  Receive Date: 20240402
  Receipt Date: 20240402
  Transmission Date: 20240716
  Serious: Yes (Other)
  Sender: FDA-Public Use
  Company Number: US-GLAXOSMITHKLINE-US2024039833

PATIENT

DRUGS (1)
  1. INCRUSE ELLIPTA [Suspect]
     Active Substance: UMECLIDINIUM BROMIDE
     Indication: Chronic obstructive pulmonary disease
     Dosage: UNK, INCRUSE ELLIPTA INHALER
     Dates: start: 201601

REACTIONS (2)
  - Pneumonia [Not Recovered/Not Resolved]
  - Gastric cancer [Recovered/Resolved]

NARRATIVE: CASE EVENT DATE: 20180301
